FAERS Safety Report 24221495 (Version 1)
Quarter: 2024Q3

REPORT INFORMATION
  Report Type: Report from Study
  Country: US (occurrence: None)
  Receive Date: 20240819
  Receipt Date: 20240819
  Transmission Date: 20241017
  Serious: Yes (Hospitalization)
  Sender: ASTRAZENECA
  Company Number: 2022A416485

PATIENT
  Age: 27640 Day
  Sex: Female

DRUGS (1)
  1. CALQUENCE [Suspect]
     Active Substance: ACALABRUTINIB
     Indication: Chronic lymphocytic leukaemia
     Route: 048
     Dates: start: 20220411

REACTIONS (6)
  - Loss of consciousness [Unknown]
  - Blood sodium decreased [Unknown]
  - Abdominal discomfort [Unknown]
  - Eye swelling [Unknown]
  - Nodule [Unknown]
  - Rash [Unknown]

NARRATIVE: CASE EVENT DATE: 20220903
